FAERS Safety Report 9157449 (Version 2)
Quarter: 2013Q1

REPORT INFORMATION
  Report Type: Spontaneous
  Country: US (occurrence: None)
  Receive Date: 20130213
  Receipt Date: 20130319
  Transmission Date: 20140127
  Serious: Yes (Hospitalization)
  Sender: FDA-Public Use
  Company Number: 2013P1001894

PATIENT
  Age: 64 Year
  Sex: Female
  Weight: 77.2 kg

DRUGS (6)
  1. HYDROCHLOROTHIAZIDE CAPSULES [Suspect]
     Dates: start: 20130120
  2. RANITIDINE [Suspect]
  3. ESTRACE [Suspect]
  4. ENJUVIA [Suspect]
     Route: 048
  5. ROCEPHIN [Suspect]
     Indication: UPPER RESPIRATORY TRACT INFECTION
  6. LEVAQUIN [Suspect]
     Indication: UPPER RESPIRATORY TRACT INFECTION

REACTIONS (4)
  - Upper respiratory tract infection [None]
  - Sinus tachycardia [None]
  - Electrocardiogram T wave inversion [None]
  - Urinary tract infection [None]
